FAERS Safety Report 5706130-6 (Version None)
Quarter: 2008Q2

REPORT INFORMATION
  Report Type: 
  Country: None (occurrence: None)
  Receive Date: 20080415
  Receipt Date: 20080403
  Transmission Date: 20081010
  Serious: Yes (Other)
  Sender: FDA-Public Use
  Company Number: US-PFIZER INC-2008021326

PATIENT
  Age: 68 Year
  Sex: Female
  Weight: 70.454 kg

DRUGS (8)
  1. DILANTIN [Suspect]
     Indication: CONVULSION
     Route: 048
  2. INSULIN [Concomitant]
  3. CRESTOR [Concomitant]
  4. ACTONEL [Concomitant]
  5. CALCIUM [Concomitant]
  6. FISH OIL [Concomitant]
  7. VITAMIN CAP [Concomitant]
  8. COZAAR [Concomitant]

REACTIONS (2)
  - CONVULSION [None]
  - DIABETES MELLITUS [None]
